FAERS Safety Report 7643494-0 (Version None)
Quarter: 2011Q3

REPORT INFORMATION
  Report Type: 
  Country: None (occurrence: None)
  Receive Date: 20110729
  Receipt Date: 20110720
  Transmission Date: 20111222
  Serious: Yes (Death, Hospitalization, Other)
  Sender: FDA-Public Use
  Company Number: US-BAYER-200940678NA

PATIENT
  Age: 63 Year
  Sex: Male
  Weight: 89 kg

DRUGS (20)
  1. ASPIRIN [Concomitant]
     Dosage: 325 MG
     Route: 048
  2. NAPROSYN [Concomitant]
     Dosage: 550 MG, BID
     Route: 048
  3. CONTRAST MEDIA [Concomitant]
     Indication: CATHETERISATION CARDIAC
     Dosage: UNK
     Dates: start: 20070328
  4. ANTIVERT [Concomitant]
     Dosage: 25 MG, TID
     Route: 048
  5. LEVAQUIN [Concomitant]
     Dosage: 200 MG, QD
  6. TRASYLOL [Suspect]
  7. CORDARONE [Concomitant]
     Dosage: 200 MG, BID
     Route: 048
  8. TRASYLOL [Suspect]
     Indication: AORTIC VALVE REPLACEMENT
     Dosage: UNK
     Route: 042
     Dates: start: 20070424
  9. HEPARIN [Concomitant]
     Dosage: UNK
     Route: 042
     Dates: start: 20070424
  10. CONTRAST MEDIA [Concomitant]
     Indication: CARDIAC VENTRICULOGRAM LEFT
  11. LEVAQUIN [Concomitant]
     Dosage: 500 MG, FIRST DAY
     Dates: start: 20070508
  12. DIOVAN [Concomitant]
     Dosage: 12.5 MG, BID
     Route: 048
  13. FLONASE [Concomitant]
     Route: 048
  14. CONTRAST MEDIA [Concomitant]
     Indication: ANGIOGRAM
  15. LABETALOL HCL [Concomitant]
     Dosage: 100 MG, UNK
     Route: 048
     Dates: start: 20070328
  16. PROTAMINE SULFATE [Concomitant]
  17. CARDIOPLEGIA [Concomitant]
  18. CONTRAST MEDIA [Concomitant]
     Indication: ARTERIOGRAM CORONARY
  19. DOPAMINE HCL [Concomitant]
     Indication: BLOOD PRESSURE MANAGEMENT
  20. CHANTIX [Concomitant]
     Dosage: 1 MG, BID
     Route: 048

REACTIONS (13)
  - PAIN [None]
  - RENAL FAILURE [None]
  - MULTI-ORGAN FAILURE [None]
  - FEAR [None]
  - INJURY [None]
  - EMOTIONAL DISTRESS [None]
  - ANXIETY [None]
  - RENAL INJURY [None]
  - DEATH [None]
  - RENAL IMPAIRMENT [None]
  - STRESS [None]
  - UNEVALUABLE EVENT [None]
  - ANHEDONIA [None]
